FAERS Safety Report 17239844 (Version 1)
Quarter: 2020Q1

REPORT INFORMATION
  Report Type: Spontaneous
  Country: US (occurrence: US)
  Receive Date: 20200106
  Receipt Date: 20200106
  Transmission Date: 20200409
  Serious: Yes (Other)
  Sender: FDA-Public Use
  Company Number: US-BIOGEN-2016BI00288026

PATIENT
  Sex: Female

DRUGS (2)
  1. TECFIDERA [Suspect]
     Active Substance: DIMETHYL FUMARATE
     Indication: MULTIPLE SCLEROSIS
     Route: 048
     Dates: start: 20160803
  2. TECFIDERA [Suspect]
     Active Substance: DIMETHYL FUMARATE
     Dosage: MAINTENANCE DOSE
     Route: 048
     Dates: start: 20160811

REACTIONS (33)
  - Decreased appetite [Recovered/Resolved]
  - Trigeminal neuralgia [Not Recovered/Not Resolved]
  - Neurogenic bladder [Not Recovered/Not Resolved]
  - Erosive oesophagitis [Recovered/Resolved]
  - Paraesthesia [Not Recovered/Not Resolved]
  - Weight decreased [Recovered/Resolved]
  - Fibromyalgia [Not Recovered/Not Resolved]
  - Memory impairment [Not Recovered/Not Resolved]
  - Facial pain [Unknown]
  - Peroneal nerve palsy [Not Recovered/Not Resolved]
  - Facial paralysis [Not Recovered/Not Resolved]
  - Neuritis [Not Recovered/Not Resolved]
  - Hypophagia [Recovered/Resolved]
  - Feeding disorder [Recovered/Resolved]
  - Gastric disorder [Recovered/Resolved]
  - Accident [Recovered/Resolved]
  - Fall [Recovered/Resolved]
  - Anal incontinence [Recovered/Resolved]
  - Pain [Recovered/Resolved]
  - Oesophagitis [Unknown]
  - Flushing [Recovered/Resolved]
  - Temperature intolerance [Not Recovered/Not Resolved]
  - Nocturia [Recovered/Resolved]
  - Lacrimation increased [Recovered/Resolved]
  - Aphasia [Recovered/Resolved]
  - Photosensitivity reaction [Unknown]
  - Vitamin D decreased [Unknown]
  - Urinary tract infection [Recovered/Resolved]
  - Hyperaesthesia [Unknown]
  - Haemoglobin decreased [Unknown]
  - Oesophageal pain [Unknown]
  - Diarrhoea [Not Recovered/Not Resolved]
  - Headache [Recovered/Resolved]
